FAERS Safety Report 20078922 (Version 1)
Quarter: 2021Q4

REPORT INFORMATION
  Report Type: Spontaneous
  Country: US (occurrence: US)
  Receive Date: 20211117
  Receipt Date: 20211117
  Transmission Date: 20220304
  Serious: No
  Sender: FDA-Public Use
  Company Number: US-ALLERGAN-2100479US

PATIENT
  Age: 61 Year
  Sex: Female

DRUGS (6)
  1. COMBIGAN [Suspect]
     Active Substance: BRIMONIDINE TARTRATE\TIMOLOL MALEATE
     Indication: Glaucoma
     Dosage: 1 GTT, BID
     Route: 047
     Dates: start: 202006
  2. REFRESH OPTIVE ADVANCED [Suspect]
     Active Substance: CARBOXYMETHYLCELLULOSE SODIUM\GLYCERIN\POLYSORBATE 80
     Indication: Dry eye
     Dosage: UNK UNK, PRN
     Route: 047
  3. SYSTANE (HYPROMELLOSE 2910 (4000 MPA.S)) [Suspect]
     Active Substance: HYPROMELLOSE 2910 (4000 MPA.S)
     Indication: Dry eye
     Dosage: UNK
     Route: 047
  4. VITAMINS [Concomitant]
     Active Substance: VITAMINS
     Dosage: UNK, QD
  5. LATANOPROST [Concomitant]
     Active Substance: LATANOPROST
     Indication: Glaucoma
     Dosage: 2 GTT, QHS
     Route: 047
  6. LISINOPRIL [Concomitant]
     Active Substance: LISINOPRIL
     Indication: Hypertension
     Dosage: 20 MG, QD

REACTIONS (5)
  - Inappropriate schedule of product administration [Unknown]
  - Conjunctivitis [Not Recovered/Not Resolved]
  - Dry eye [Recovering/Resolving]
  - Ocular hyperaemia [Recovering/Resolving]
  - Drug ineffective [Unknown]

NARRATIVE: CASE EVENT DATE: 20210101
